FAERS Safety Report 9694841 (Version 1)
Quarter: 2013Q4

REPORT INFORMATION
  Report Type: Spontaneous
  Country: IT (occurrence: IT)
  Receive Date: 20131119
  Receipt Date: 20131119
  Transmission Date: 20140711
  Serious: Yes (Other)
  Sender: FDA-Public Use
  Company Number: IT-ACCORD-020340

PATIENT
  Age: 70 Year
  Sex: Male
  Weight: 71 kg

DRUGS (5)
  1. GEMCITABINE [Suspect]
     Indication: LUNG NEOPLASM MALIGNANT
     Route: 042
     Dates: start: 20130320, end: 20130613
  2. CISPLATIN [Suspect]
     Indication: LUNG NEOPLASM MALIGNANT
     Route: 042
     Dates: start: 20130320, end: 20130613
  3. SOLDESAM [Concomitant]
     Route: 042
     Dates: start: 20130320, end: 20130613
  4. ONDANSETRON [Concomitant]
     Route: 042
     Dates: start: 20130320, end: 20130613
  5. RANIDIL [Concomitant]
     Route: 042
     Dates: start: 20130320, end: 20130613

REACTIONS (8)
  - Dyspnoea [Unknown]
  - Fatigue [Unknown]
  - Formication [Unknown]
  - Musculoskeletal pain [Unknown]
  - Nausea [Unknown]
  - Vomiting [Unknown]
  - Abdominal pain [Unknown]
  - Chest pain [Unknown]
